FAERS Safety Report 5488846-2 (Version None)
Quarter: 2007Q4

REPORT INFORMATION
  Report Type: 
  Country: None (occurrence: None)
  Receive Date: 20071016
  Receipt Date: 20071008
  Transmission Date: 20080405
  Serious: Yes (Other)
  Sender: FDA-Public Use
  Company Number: GXKR2007DE06959

PATIENT
  Age: 58 Year
  Sex: Male

DRUGS (5)
  1. GLIMEPIRID HEXAL (NGX)(GLIMEPIRIDE) TABLET, 3MG [Suspect]
     Dosage: 80 X 3 MG, ORAL
     Route: 048
  2. DICLOFENAC (DICLOFENAC) [Concomitant]
  3. CAPTOPRIL [Concomitant]
  4. HYDROCHLOROTHIAZIDE [Concomitant]
  5. INSULIN [Concomitant]

REACTIONS (3)
  - DRUG INEFFECTIVE [None]
  - MULTIPLE DRUG OVERDOSE INTENTIONAL [None]
  - SUICIDE ATTEMPT [None]
